FAERS Safety Report 5781355-2 (Version None)
Quarter: 2008Q2

REPORT INFORMATION
  Report Type: 
  Country: None (occurrence: None)
  Receive Date: 20080623
  Receipt Date: 20080609
  Transmission Date: 20081010
  Serious: Yes (Hospitalization)
  Sender: FDA-Public Use
  Company Number: US-TYCO HEALTHCARE/MALLINCKRODT-T200800996

PATIENT

DRUGS (8)
  1. METHADONE HCL [Suspect]
     Indication: PAIN
     Dosage: 320 MG, BID (32 TABLETS EVERY 12 HOURS)
     Route: 048
     Dates: start: 20060101, end: 20080604
  2. VALIUM [Concomitant]
     Indication: MUSCLE SPASMS
     Dosage: 10 MG, BID
     Route: 048
  3. METOPROLOL                         /00376902/ [Concomitant]
     Indication: BLOOD PRESSURE
     Dosage: 1, QD
     Route: 048
  4. ALLOPURINOL [Concomitant]
     Indication: NEPHROLITHIASIS
     Dosage: UNK, QD
     Route: 048
  5. CLONIDINE [Concomitant]
     Indication: BLOOD PRESSURE
     Dosage: 1, BID
     Route: 048
  6. PREDNISONE TAB [Concomitant]
     Indication: PAIN
  7. TYLENOL (CAPLET) [Concomitant]
     Indication: PAIN
  8. FENTANYL                           /00174602/ [Concomitant]
     Indication: PAIN
     Dosage: 100 MG DAILY
     Route: 023
     Dates: start: 20080501

REACTIONS (8)
  - CONTUSION [None]
  - DIZZINESS [None]
  - ELECTROCARDIOGRAM QT PROLONGED [None]
  - FACIAL BONES FRACTURE [None]
  - FALL [None]
  - SUBARACHNOID HAEMORRHAGE [None]
  - SYNCOPE [None]
  - VENTRICULAR TACHYCARDIA [None]
